FAERS Safety Report 10606431 (Version 1)
Quarter: 2014Q4

REPORT INFORMATION
  Report Type: Spontaneous
  Country: US (occurrence: None)
  Receive Date: 20141124
  Receipt Date: 20141124
  Transmission Date: 20150529
  Serious: Yes (Other)
  Sender: FDA-Public Use
  Company Number: None

PATIENT
  Age: 60 Year
  Sex: Male
  Weight: 85.73 kg

DRUGS (1)
  1. ENBREL [Suspect]
     Active Substance: ETANERCEPT
     Indication: RHEUMATOID ARTHRITIS
     Dosage: STRENGTH: 50, ROUTE: SUBCUTANEOUS 057, DOSE FORM: INJECTABLE, FREQUENCY: QWK
     Route: 058
     Dates: start: 20140911

REACTIONS (3)
  - Pain [None]
  - Back pain [None]
  - Flatulence [None]

NARRATIVE: CASE EVENT DATE: 20141023
